FAERS Safety Report 5322818-3 (Version None)
Quarter: 2007Q2

REPORT INFORMATION
  Report Type: 
  Country: None (occurrence: None)
  Receive Date: 20070511
  Receipt Date: 20070430
  Transmission Date: 20071010
  Serious: Yes (Hospitalization)
  Sender: FDA-Public Use
  Company Number: PFIZER INC-2007034521

PATIENT
  Age: 38 Year
  Sex: Female
  Weight: 62 kg

DRUGS (2)
  1. SUTENT [Suspect]
     Indication: MALIGNANT MELANOMA
     Route: 048
     Dates: start: 20061212, end: 20070328
  2. BEVACIZUMAB [Suspect]
     Indication: MALIGNANT MELANOMA
     Route: 042

REACTIONS (1)
  - SOFT TISSUE NECROSIS [None]
